FAERS Safety Report 4736030-X (Version None)
Quarter: 2005Q3

REPORT INFORMATION
  Report Type: 
  Country: None (occurrence: None)
  Receive Date: 20050805
  Receipt Date: 20050428
  Transmission Date: 20060218
  Serious: Yes (Hospitalization)
  Sender: FDA-Public Use
  Company Number: US-MERCK-0505USA00133

PATIENT
  Age: 75 Year
  Sex: Female
  Weight: 73 kg

DRUGS (3)
  1. VIOXX [Suspect]
     Indication: PAIN
     Route: 048
     Dates: start: 20010101, end: 20040930
  2. LIPITOR [Concomitant]
     Route: 065
  3. ASPIRIN [Concomitant]
     Route: 065

REACTIONS (4)
  - ABDOMINAL PAIN UPPER [None]
  - GASTROOESOPHAGEAL REFLUX DISEASE [None]
  - MYOCARDIAL INFARCTION [None]
  - TENSION HEADACHE [None]
